FAERS Safety Report 11592581 (Version 2)
Quarter: 2023Q2

REPORT INFORMATION
  Report Type: Spontaneous
  Country: US (occurrence: US)
  Receive Date: 20151005
  Receipt Date: 20230627
  Transmission Date: 20230721
  Serious: Yes (Death, Hospitalization)
  Sender: FDA-Public Use
  Company Number: US-AUROBINDO-AUR-APL-2011-05923

PATIENT
  Age: 50 Year
  Sex: Female

DRUGS (5)
  1. METOPROLOL TARTRATE [Suspect]
     Active Substance: METOPROLOL TARTRATE
     Indication: Product used for unknown indication
     Dosage: UNK UNK,UNK,
     Route: 065
  2. BUPROPION HYDROCHLORIDE [Suspect]
     Active Substance: BUPROPION HYDROCHLORIDE
     Indication: Product used for unknown indication
     Dosage: UNK UNK,UNK,
     Route: 065
  3. INSULIN NOS [Interacting]
     Active Substance: INSULIN NOS
     Indication: Cardiogenic shock
     Dosage: UNK UNK,UNK,
     Route: 065
  4. FAT EMULSION NOS [Suspect]
     Active Substance: EGG PHOSPHOLIPIDS\SAFFLOWER OIL\SOYBEAN OIL
     Indication: Cardiogenic shock
     Dosage: UNK UNK,UNK,
     Route: 042
  5. FENOFIBRATE [Concomitant]
     Active Substance: FENOFIBRATE
     Indication: Product used for unknown indication
     Dosage: UNK UNK,UNK,
     Route: 065

REACTIONS (13)
  - Multiple organ dysfunction syndrome [Fatal]
  - Cardiac arrest [Fatal]
  - Cardiogenic shock [Fatal]
  - Intentional overdose [Fatal]
  - Toxicity to various agents [Fatal]
  - Hypotension [Unknown]
  - Bradycardia [Unknown]
  - Suicide attempt [Unknown]
  - Seizure [Unknown]
  - Somnolence [Unknown]
  - Condition aggravated [Unknown]
  - Drug interaction [Unknown]
  - Overdose [Unknown]
